FAERS Safety Report 15425939 (Version 8)
Quarter: 2021Q1

REPORT INFORMATION
  Report Type: Spontaneous
  Country: US (occurrence: US)
  Receive Date: 20180925
  Receipt Date: 20210219
  Transmission Date: 20210419
  Serious: No
  Sender: FDA-Public Use
  Company Number: US-BIOMARINAP-US-2018-120008

PATIENT
  Age: 11 Year
  Sex: Male

DRUGS (4)
  1. ALDURAZYME [Suspect]
     Active Substance: LARONIDASE
     Indication: MUCOPOLYSACCHARIDOSIS I
     Dosage: 20.3 MILLIGRAM
     Route: 041
     Dates: start: 20150603
  2. ALDURAZYME [Suspect]
     Active Substance: LARONIDASE
     Dosage: 23.2 MILLIGRAM, QW
     Route: 041
     Dates: start: 20200228
  3. ALDURAZYME [Suspect]
     Active Substance: LARONIDASE
     Dosage: 23.2 MILLIGRAM, QW
     Route: 041
     Dates: start: 20181221
  4. ALDURAZYME [Suspect]
     Active Substance: LARONIDASE
     Dosage: 23.2 MILLIGRAM, QW
     Route: 041
     Dates: start: 20200220

REACTIONS (12)
  - Finger deformity [Not Recovered/Not Resolved]
  - Poor venous access [Recovering/Resolving]
  - Asthma [Not Recovered/Not Resolved]
  - Bone pain [Recovering/Resolving]
  - Infusion site pain [Unknown]
  - Anxiety [Not Recovered/Not Resolved]
  - Insomnia [Recovered/Resolved]
  - Musculoskeletal stiffness [Not Recovered/Not Resolved]
  - Urticaria [Recovered/Resolved]
  - Rash [Unknown]
  - Device breakage [Recovered/Resolved]
  - Arthralgia [Recovered/Resolved]

NARRATIVE: CASE EVENT DATE: 20200423
